FAERS Safety Report 20606282 (Version 1)
Quarter: 2022Q1

REPORT INFORMATION
  Report Type: Report from Study
  Country: US (occurrence: US)
  Receive Date: 20220317
  Receipt Date: 20220317
  Transmission Date: 20220424
  Serious: Yes (Other)
  Sender: FDA-Public Use
  Company Number: US-SHIRE-US201806130AA

PATIENT
  Sex: Female

DRUGS (1)
  1. HUMAN IMMUNOGLOBULIN G [Suspect]
     Active Substance: HUMAN IMMUNOGLOBULIN G
     Indication: Immunodeficiency common variable
     Dosage: 26 GRAM, 1/WEEK
     Route: 065

REACTIONS (5)
  - Adenovirus infection [Unknown]
  - Metabolic surgery [Unknown]
  - Tonsillar cyst [Unknown]
  - Dizziness [Recovering/Resolving]
  - Headache [Recovering/Resolving]
